FAERS Safety Report 4268087-7 (Version None)
Quarter: 2004Q1

REPORT INFORMATION
  Report Type: 
  Country: None (occurrence: None)
  Receive Date: 20040109
  Receipt Date: 20031230
  Transmission Date: 20041129
  Serious: Yes (Hospitalization)
  Sender: FDA-Public Use
  Company Number: PHHO2003AU16688

PATIENT
  Age: 61 Year
  Sex: Male
  Weight: 124 kg

DRUGS (4)
  1. ERL080 [Suspect]
     Indication: RENAL TRANSPLANT
     Dosage: 720 MG, BID
     Route: 048
     Dates: start: 20031201
  2. NEORAL [Suspect]
     Indication: RENAL TRANSPLANT
     Dosage: 600 MG, BID
     Route: 048
     Dates: start: 20031201, end: 20031212
  3. PREDNISOLONE [Concomitant]
     Indication: RENAL TRANSPLANT
     Dosage: NOT REPORTED
     Route: 048
     Dates: end: 20031206
  4. PREDNISOLONE [Concomitant]
     Dosage: 30 MG/DAY
     Route: 048
     Dates: start: 20031212

REACTIONS (6)
  - BLOOD CREATININE INCREASED [None]
  - DRUG INEFFECTIVE [None]
  - GRAFT DYSFUNCTION [None]
  - IMPAIRED HEALING [None]
  - KIDNEY ANASTOMOSIS [None]
  - KIDNEY TRANSPLANT REJECTION [None]
